FAERS Safety Report 5938120-2 (Version None)
Quarter: 2008Q4

REPORT INFORMATION
  Report Type: 
  Country: None (occurrence: None)
  Receive Date: 20081031
  Receipt Date: 20081021
  Transmission Date: 20090506
  Serious: Yes (Other)
  Sender: FDA-Public Use
  Company Number: US-PFIZER INC-2008088654

PATIENT
  Sex: Female
  Weight: 83.5 kg

DRUGS (3)
  1. LYRICA [Suspect]
     Indication: FIBROMYALGIA
     Dates: start: 20080513
  2. IBUPROFEN TABLETS [Concomitant]
  3. ALBUTEROL [Concomitant]

REACTIONS (4)
  - ANTINUCLEAR ANTIBODY POSITIVE [None]
  - FIBROMYALGIA [None]
  - MUSCULOSKELETAL DISORDER [None]
  - SYSTEMIC LUPUS ERYTHEMATOSUS [None]
